FAERS Safety Report 8608368-7 (Version None)
Quarter: 2012Q3

REPORT INFORMATION
  Report Type: 
  Country: None (occurrence: None)
  Receive Date: 20120821
  Receipt Date: 20120810
  Transmission Date: 20120928
  Serious: Yes (Hospitalization)
  Sender: FDA-Public Use
  Company Number: GB-JNJFOC-20120801184

PATIENT
  Age: 72 Year
  Sex: Female
  Weight: 53 kg

DRUGS (7)
  1. XARELTO [Suspect]
     Indication: KNEE OPERATION
     Route: 048
     Dates: start: 20120616, end: 20120701
  2. XARELTO [Suspect]
     Indication: THROMBOSIS PROPHYLAXIS
     Route: 048
     Dates: start: 20120616, end: 20120701
  3. APIXABAN [Suspect]
     Indication: THROMBOSIS PROPHYLAXIS
     Dates: start: 20120616, end: 20120701
  4. AMILORIDE HYDROCHLORIDE/FUROSEMIDE [Concomitant]
  5. CALCIUM CARBONATE [Concomitant]
  6. LEVOTHYROXINE SODIUM [Concomitant]
  7. COLECALCIFEROL [Concomitant]

REACTIONS (4)
  - ARTHRALGIA [None]
  - HAEMATOMA [None]
  - WOUND HAEMORRHAGE [None]
  - JOINT SWELLING [None]
